FAERS Safety Report 13431114 (Version 1)
Quarter: 2017Q2

REPORT INFORMATION
  Report Type: Spontaneous
  Country: TR (occurrence: TR)
  Receive Date: 20170412
  Receipt Date: 20170412
  Transmission Date: 20170830
  Serious: Yes (Death)
  Sender: FDA-Public Use
  Company Number: TR-ASTRAZENECA-2017SE37176

PATIENT
  Age: 46 Year
  Sex: Male
  Weight: 120 kg

DRUGS (3)
  1. BRILINTA [Suspect]
     Active Substance: TICAGRELOR
     Route: 048
     Dates: start: 20170331
  2. PLAVIX [Concomitant]
     Active Substance: CLOPIDOGREL BISULFATE
     Dosage: 300.0MG UNKNOWN
     Dates: start: 20170331
  3. ABCIXIMAB [Concomitant]
     Active Substance: ABCIXIMAB
     Indication: ACUTE CORONARY SYNDROME
     Dosage: 10 MG/5 ML
     Route: 042
     Dates: start: 20170331, end: 20170331

REACTIONS (1)
  - Pulmonary haemorrhage [Fatal]
